FAERS Safety Report 9764271 (Version 1)
Quarter: 2013Q4

REPORT INFORMATION
  Report Type: Report from Study
  Country: SI (occurrence: SI)
  Receive Date: 20131217
  Receipt Date: 20131217
  Transmission Date: 20140711
  Serious: Yes (Hospitalization, Other)
  Sender: FDA-Public Use
  Company Number: SI-ROCHE-1320308

PATIENT
  Sex: 0

DRUGS (4)
  1. RIBAVIRIN [Suspect]
     Indication: CHRONIC HEPATITIS C
     Dosage: 15 MG/KG BODY WEIGHT PER DAY
     Route: 065
  2. PEG-INTERFERON ALFA 2A [Suspect]
     Indication: CHRONIC HEPATITIS C
     Route: 058
  3. PEGINTERFERON ALFA-2B [Suspect]
     Indication: CHRONIC HEPATITIS C
     Route: 058
  4. FLUVASTATIN [Suspect]
     Indication: CHRONIC HEPATITIS C
     Route: 065

REACTIONS (3)
  - Anaemia [Unknown]
  - Gamma-glutamyltransferase increased [Unknown]
  - Mental disorder [Unknown]
